FAERS Safety Report 7833582-8 (Version None)
Quarter: 2011Q4

REPORT INFORMATION
  Report Type: 
  Country: None (occurrence: None)
  Receive Date: 20111024
  Receipt Date: 20110928
  Transmission Date: 20120403
  Serious: Yes (Hospitalization)
  Sender: FDA-Public Use
  Company Number: JP-EISAI INC-E7389-01623-CLI-JP

PATIENT
  Sex: Female
  Weight: 40 kg

DRUGS (21)
  1. MEDROXYPROGESTERONE ACETATE [Concomitant]
     Indication: BREAST CANCER RECURRENT
     Dates: start: 20100603
  2. FUROSEMIDE [Concomitant]
  3. HALAVEN [Suspect]
     Indication: BREAST CANCER RECURRENT
     Dates: start: 20110804
  4. MEDROXYPROGESTERONE ACETATE [Concomitant]
  5. DECADRON [Concomitant]
     Indication: PROPHYLAXIS
  6. HALAVEN [Suspect]
  7. ZOMETA [Concomitant]
     Indication: METASTASES TO BONE
  8. GLYCEOL [Concomitant]
  9. FAMOTIDINE [Concomitant]
     Indication: PROPHYLAXIS
  10. NEOPHAGEN [Concomitant]
     Indication: PROPHYLAXIS
  11. PHENYTOIN SODIUM CAP [Concomitant]
     Indication: PROPHYLAXIS
     Route: 048
  12. AZUNOL [Concomitant]
     Indication: PROPHYLAXIS
  13. HALAVEN [Suspect]
     Indication: METASTASES TO LIVER
  14. PACIF [Concomitant]
     Route: 048
  15. LANSOPRAZOLE [Concomitant]
     Indication: PROPHYLAXIS
     Route: 048
  16. GRANISETRON [Concomitant]
     Indication: PROPHYLAXIS
  17. HALAVEN [Suspect]
     Indication: METASTASES TO LUNG
  18. HALAVEN [Suspect]
     Indication: METASTASES TO BONE
  19. PRECOAT [Concomitant]
     Route: 048
  20. CELESTAMINE TAB [Concomitant]
     Indication: PROPHYLAXIS
     Route: 048
  21. ELIETEN [Concomitant]
     Indication: PROPHYLAXIS
     Route: 048

REACTIONS (3)
  - FEBRILE NEUTROPENIA [None]
  - PNEUMONIA [None]
  - LEUKOPENIA [None]
